FAERS Safety Report 18983162 (Version 3)
Quarter: 2023Q1

REPORT INFORMATION
  Report Type: Spontaneous
  Country: CA (occurrence: None)
  Receive Date: 20210308
  Receipt Date: 20230327
  Transmission Date: 20230418
  Serious: Yes (Life-Threatening, Hospitalization, Other)
  Sender: FDA-Public Use
  Company Number: 2021A099042

PATIENT
  Age: 76 Year
  Sex: Female

DRUGS (8)
  1. ROSUVASTATIN [Suspect]
     Active Substance: ROSUVASTATIN
     Indication: Prophylaxis
     Route: 048
  2. ROSUVASTATIN [Suspect]
     Active Substance: ROSUVASTATIN
     Indication: Coronary artery disease
     Route: 048
  3. INVOKANA [Suspect]
     Active Substance: CANAGLIFLOZIN
     Indication: Type 2 diabetes mellitus
     Route: 065
  4. ASPIRIN [Concomitant]
     Active Substance: ASPIRIN
     Indication: Product used for unknown indication
  5. BISOPROLOL [Concomitant]
     Active Substance: BISOPROLOL
     Indication: Product used for unknown indication
  6. LEVOTHYROXINE [Concomitant]
     Active Substance: LEVOTHYROXINE
     Indication: Product used for unknown indication
  7. METFORMIN [Concomitant]
     Active Substance: METFORMIN HYDROCHLORIDE
     Indication: Product used for unknown indication
  8. RISEDRONATE SODIUM [Concomitant]
     Active Substance: RISEDRONATE SODIUM
     Indication: Product used for unknown indication

REACTIONS (12)
  - Drug interaction [Recovered/Resolved]
  - Drug level above therapeutic [Recovered/Resolved]
  - Drug level increased [Recovered/Resolved]
  - Drug-induced liver injury [Recovered/Resolved]
  - Gait disturbance [Recovered/Resolved]
  - Hepatocellular injury [Recovered/Resolved]
  - Laboratory test abnormal [Recovered/Resolved]
  - Muscle disorder [Recovered/Resolved]
  - Musculoskeletal toxicity [Recovered/Resolved]
  - Myopathy toxic [Recovered/Resolved]
  - Rhabdomyolysis [Recovered/Resolved]
  - Toxicity to various agents [Recovered/Resolved]
